FAERS Safety Report 8480851-7 (Version None)
Quarter: 2012Q2

REPORT INFORMATION
  Report Type: 
  Country: None (occurrence: None)
  Receive Date: 20120625
  Receipt Date: 20120601
  Transmission Date: 20120825
  Serious: Yes (Hospitalization)
  Sender: FDA-Public Use
  Company Number: 2012000149

PATIENT
  Age: 78 Year
  Weight: 74 kg

DRUGS (4)
  1. ACEON [Suspect]
     Indication: ARRHYTHMIA
     Dosage: 5 MG, QD, ORAL
     Route: 048
  2. DIGOXIN [Concomitant]
  3. PREVISCAN (FLUINDIONE) [Concomitant]
  4. TRAMADOL HYDROHLORIDE [Concomitant]

REACTIONS (5)
  - DRUG DISPENSING ERROR [None]
  - TOXICITY TO VARIOUS AGENTS [None]
  - WRONG DRUG ADMINISTERED [None]
  - PRODUCT COLOUR ISSUE [None]
  - SYNCOPE [None]
